FAERS Safety Report 9126591 (Version 1)
Quarter: 2013Q1

REPORT INFORMATION
  Report Type: Spontaneous
  Country: US (occurrence: US)
  Receive Date: 20130228
  Receipt Date: 20130228
  Transmission Date: 20140127
  Serious: Yes (Hospitalization)
  Sender: FDA-Public Use
  Company Number: US-JNJFOC-20130211344

PATIENT
  Age: 66 Year
  Sex: Male
  Weight: 67.12 kg

DRUGS (10)
  1. IBUPROFEN [Suspect]
     Indication: TRIGEMINAL NEURALGIA
     Route: 065
  2. IBUPROFEN [Suspect]
     Indication: TRIGEMINAL NEURALGIA
     Dosage: UNKNOWN DOSE, 15-16 TIMES IN A DAY
     Route: 065
  3. OXYCODONE HYDROCHLORIDE [Suspect]
     Indication: TRIGEMINAL NEURALGIA
     Route: 065
  4. LYRICA [Suspect]
     Indication: TRIGEMINAL NEURALGIA
     Route: 065
  5. LYRICA [Suspect]
     Indication: TRIGEMINAL NEURALGIA
     Route: 065
     Dates: start: 20130115
  6. HYDROCODONE [Suspect]
     Indication: TRIGEMINAL NEURALGIA
     Route: 065
  7. SPIRIVA [Suspect]
     Indication: CHRONIC OBSTRUCTIVE PULMONARY DISEASE
     Route: 065
     Dates: start: 200808
  8. MORPHINE SULFATE [Suspect]
     Indication: TRIGEMINAL NEURALGIA
     Route: 065
     Dates: start: 20130206, end: 20130207
  9. MORPHINE SULFATE [Suspect]
     Indication: TRIGEMINAL NEURALGIA
     Route: 065
  10. ADVAIR DISKUS [Concomitant]
     Indication: CHRONIC OBSTRUCTIVE PULMONARY DISEASE
     Dosage: 500/50MG

REACTIONS (9)
  - Pneumonia aspiration [Recovered/Resolved]
  - Weight decreased [Unknown]
  - Blood pressure decreased [Recovered/Resolved]
  - Heart rate increased [Recovered/Resolved]
  - Oropharyngeal pain [Unknown]
  - Pain [Unknown]
  - Pulmonary oedema [Unknown]
  - Treatment noncompliance [Unknown]
  - Overdose [Unknown]
